FAERS Safety Report 7299834-8 (Version None)
Quarter: 2011Q1

REPORT INFORMATION
  Report Type: 
  Country: None (occurrence: None)
  Receive Date: 20110217
  Receipt Date: 20110214
  Transmission Date: 20110831
  Serious: Yes (Death, Other)
  Sender: FDA-Public Use
  Company Number: US-AMGEN-USASP2011007001

PATIENT
  Sex: Male
  Weight: 97.052 kg

DRUGS (10)
  1. JANUVIA [Concomitant]
  2. METFORMIN [Concomitant]
  3. VORICONAZOLE [Concomitant]
  4. NPLATE [Suspect]
     Indication: IDIOPATHIC THROMBOCYTOPENIC PURPURA
     Dosage: 5 A?G/KG, QWK
     Route: 058
     Dates: start: 20100826, end: 20101007
  5. GABAPENTIN [Concomitant]
  6. POTASSIUM [Concomitant]
  7. VALACICLOVIR [Concomitant]
  8. NPLATE [Suspect]
     Indication: MYELODYSPLASTIC SYNDROME
  9. LISINOPRIL [Concomitant]
  10. CEPHALEXIN [Concomitant]

REACTIONS (5)
  - INFECTION [None]
  - HAEMATOLOGICAL MALIGNANCY [None]
  - NEUTROPENIC SEPSIS [None]
  - MYELODYSPLASTIC SYNDROME [None]
  - DRUG INEFFECTIVE [None]
